FAERS Safety Report 7598122-X (Version None)
Quarter: 2011Q3

REPORT INFORMATION
  Report Type: 
  Country: None (occurrence: None)
  Receive Date: 20110708
  Receipt Date: 20110628
  Transmission Date: 20111222
  Serious: Yes (Other)
  Sender: FDA-Public Use
  Company Number: US-PERRIGO-11US005465

PATIENT
  Sex: Female

DRUGS (1)
  1. DIPHENHYDRAMINE HCL [Suspect]
     Indication: ACCIDENTAL EXPOSURE
     Dosage: APPROXIMATELY 60 ML, SINGLE
     Route: 048
     Dates: start: 20110601, end: 20110601

REACTIONS (3)
  - SUDDEN ONSET OF SLEEP [None]
  - ACCIDENTAL OVERDOSE [None]
  - HEART RATE INCREASED [None]
